FAERS Safety Report 14935769 (Version 1)
Quarter: 2018Q2

REPORT INFORMATION
  Report Type: Spontaneous
  Country: AR (occurrence: AR)
  Receive Date: 20180524
  Receipt Date: 20180524
  Transmission Date: 20180711
  Serious: Yes (Other)
  Sender: FDA-Public Use
  Company Number: AR-ACTELION-A-US2018-172699

PATIENT
  Age: 60 Year
  Sex: Male

DRUGS (4)
  1. VENTAVIS [Suspect]
     Active Substance: ILOPROST
     Indication: PRODUCT USED FOR UNKNOWN INDICATION
     Dosage: UNK
     Route: 055
  2. TADALAFIL [Concomitant]
     Active Substance: TADALAFIL
  3. MACITENTAN [Concomitant]
     Active Substance: MACITENTAN
     Indication: INVESTIGATION
  4. MACITENTAN [Concomitant]
     Active Substance: MACITENTAN
     Indication: INVESTIGATION

REACTIONS (4)
  - Pulmonary mass [Not Recovered/Not Resolved]
  - Lymphadenopathy mediastinal [Not Recovered/Not Resolved]
  - Hepatic mass [Not Recovered/Not Resolved]
  - Neoplasm [Not Recovered/Not Resolved]

NARRATIVE: CASE EVENT DATE: 20180510
